FAERS Safety Report 21088407 (Version 1)
Quarter: 2022Q3

REPORT INFORMATION
  Report Type: Spontaneous
  Country: AU (occurrence: AU)
  Receive Date: 20220715
  Receipt Date: 20220715
  Transmission Date: 20221027
  Serious: Yes (Other)
  Sender: FDA-Public Use
  Company Number: AU-ANIPHARMA-2022-AU-000176

PATIENT
  Age: 52 Year
  Sex: Female
  Weight: 55 kg

DRUGS (5)
  1. ARIMIDEX [Suspect]
     Active Substance: ANASTROZOLE
     Indication: Product used for unknown indication
     Route: 048
  2. ADO-TRASTUZUMAB EMTANSINE [Concomitant]
     Active Substance: ADO-TRASTUZUMAB EMTANSINE
     Route: 065
     Dates: start: 201810, end: 202001
  3. CAPECITABINE [Concomitant]
     Active Substance: CAPECITABINE
     Route: 065
     Dates: start: 202002, end: 202206
  4. LAPATINIB [Concomitant]
     Active Substance: LAPATINIB
     Route: 065
     Dates: start: 202002, end: 202206
  5. PACLITAXEL [Concomitant]
     Active Substance: PACLITAXEL
     Route: 065
     Dates: start: 202002, end: 202206

REACTIONS (2)
  - Metastases to central nervous system [Unknown]
  - Metastases to spine [Unknown]
